FAERS Safety Report 16754388 (Version 3)
Quarter: 2019Q4

REPORT INFORMATION
  Report Type: Spontaneous
  Country: US (occurrence: US)
  Receive Date: 20190829
  Receipt Date: 20191217
  Transmission Date: 20200122
  Serious: Yes (Hospitalization, Other)
  Sender: FDA-Public Use
  Company Number: US-PFIZER INC-2019368599

PATIENT
  Age: 88 Year

DRUGS (4)
  1. NITROSTAT [Suspect]
     Active Substance: NITROGLYCERIN
     Dosage: UNK, AS NEEDED
  2. NORVASC [Suspect]
     Active Substance: AMLODIPINE BESYLATE
     Dosage: 5 MG, 2X/DAY
  3. XALATAN [Suspect]
     Active Substance: LATANOPROST
     Dosage: UNK, DAILY (EYE DROP 1 DAILY)
  4. LIPITOR [Suspect]
     Active Substance: ATORVASTATIN CALCIUM
     Dosage: 40 MG, DAILY

REACTIONS (4)
  - Cerebrovascular accident [Unknown]
  - Stent malfunction [Unknown]
  - Hypersensitivity [Unknown]
  - Hypoacusis [Not Recovered/Not Resolved]
